FAERS Safety Report 5415143-3 (Version None)
Quarter: 2007Q3

REPORT INFORMATION
  Report Type: 
  Country: None (occurrence: None)
  Receive Date: 20070815
  Receipt Date: 20070627
  Transmission Date: 20080115
  Serious: No
  Sender: FDA-Public Use
  Company Number: A0661330A

PATIENT
  Age: 64 Year
  Sex: Female

DRUGS (4)
  1. COREG CR [Suspect]
     Indication: HYPERTENSION
     Dosage: 10MG PER DAY
     Route: 048
     Dates: start: 20070501
  2. NEXIUM [Concomitant]
  3. ELAVIL [Concomitant]
  4. COREG [Concomitant]
     Indication: HYPERTENSION
     Dosage: 3.125MGD SEE DOSAGE TEXT
     Route: 048

REACTIONS (2)
  - DIZZINESS [None]
  - INSOMNIA [None]
